FAERS Safety Report 7156251-9 (Version None)
Quarter: 2010Q4

REPORT INFORMATION
  Report Type: 
  Country: None (occurrence: None)
  Receive Date: 20101214
  Receipt Date: 20101207
  Transmission Date: 20110411
  Serious: Yes (Death, Life-Threatening, Hospitalization, Other)
  Sender: FDA-Public Use
  Company Number: SG-ELI_LILLY_AND_COMPANY-SG201012001886

PATIENT
  Sex: Female
  Weight: 44 kg

DRUGS (4)
  1. ALIMTA [Suspect]
     Indication: LUNG ADENOCARCINOMA RECURRENT
     Dosage: 500 MG, OTHER
     Route: 042
     Dates: start: 20101109
  2. CARBOPLATIN [Concomitant]
     Indication: LUNG ADENOCARCINOMA RECURRENT
     Dosage: 200 MG, UNKNOWN
     Route: 065
     Dates: start: 20101109
  3. BONDRONAT /01304701/ [Concomitant]
     Indication: OSTEOPOROSIS
     Dosage: 3 MG, UNKNOWN
     Route: 065
     Dates: start: 20101109
  4. FOLIC ACID [Concomitant]
     Dosage: UNK, UNKNOWN
     Route: 065
     Dates: start: 20101102

REACTIONS (3)
  - MULTI-ORGAN FAILURE [None]
  - PANCYTOPENIA [None]
  - RESPIRATORY FAILURE [None]
